FAERS Safety Report 6159306-0 (Version None)
Quarter: 2009Q2

REPORT INFORMATION
  Report Type: 
  Country: None (occurrence: None)
  Receive Date: 20090417
  Receipt Date: 20090410
  Transmission Date: 20091009
  Serious: Yes (Hospitalization)
  Sender: FDA-Public Use
  Company Number: US-ABBOTT-09P-163-0567616-00

PATIENT
  Sex: Female
  Weight: 80.358 kg

DRUGS (2)
  1. SIMCOR [Suspect]
     Indication: BLOOD CHOLESTEROL INCREASED
     Dosage: FORM: 500/20MG
     Route: 048
     Dates: start: 20090406, end: 20090407
  2. SINGULAIR [Concomitant]
     Indication: ASTHMA

REACTIONS (7)
  - BLOOD PRESSURE INCREASED [None]
  - CHEST PAIN [None]
  - CONFUSIONAL STATE [None]
  - DYSPNOEA [None]
  - HEPATIC ENZYME INCREASED [None]
  - HYPERHIDROSIS [None]
  - HYPOAESTHESIA [None]
